FAERS Safety Report 19944525 (Version 1)
Quarter: 2021Q4

REPORT INFORMATION
  Report Type: Spontaneous
  Country: US (occurrence: US)
  Receive Date: 20211010
  Receipt Date: 20211010
  Transmission Date: 20220303
  Serious: No
  Sender: FDA-Public Use
  Company Number: None

PATIENT
  Age: 39 Year
  Sex: Female
  Weight: 72 kg

DRUGS (1)
  1. LUMIFY [Suspect]
     Active Substance: BRIMONIDINE TARTRATE
     Indication: Ocular hyperaemia
     Route: 047
     Dates: start: 20211004, end: 20211008

REACTIONS (6)
  - Dry eye [None]
  - Headache [None]
  - Foreign body sensation in eyes [None]
  - Eyelids pruritus [None]
  - Visual impairment [None]
  - Ocular hyperaemia [None]

NARRATIVE: CASE EVENT DATE: 20211006
